FAERS Safety Report 25411391 (Version 1)
Quarter: 2025Q2

REPORT INFORMATION
  Report Type: Spontaneous
  Country: US (occurrence: US)
  Receive Date: 20250609
  Receipt Date: 20250609
  Transmission Date: 20250717
  Serious: No
  Sender: ROCHE
  Company Number: US-ROCHE-10000305207

PATIENT
  Sex: Female

DRUGS (1)
  1. ERIVEDGE [Suspect]
     Active Substance: VISMODEGIB
     Indication: Neoplasm malignant
     Route: 048
     Dates: start: 202502

REACTIONS (5)
  - Off label use [Unknown]
  - Muscle spasms [Unknown]
  - Ageusia [Unknown]
  - Headache [Unknown]
  - Amnesia [Unknown]
